FAERS Safety Report 15593930 (Version 1)
Quarter: 2018Q4

REPORT INFORMATION
  Report Type: Spontaneous
  Country: US (occurrence: US)
  Receive Date: 20181107
  Receipt Date: 20181107
  Transmission Date: 20190205
  Serious: No
  Sender: FDA-Public Use
  Company Number: US-009507513-1810USA010053

PATIENT
  Age: 26 Year
  Sex: Female
  Weight: 122.45 kg

DRUGS (1)
  1. NEXPLANON [Suspect]
     Active Substance: ETONOGESTREL
     Indication: CONTRACEPTION
     Dosage: 1 ROD IN LEFT ARM
     Route: 059
     Dates: start: 20180913

REACTIONS (15)
  - Mood altered [Unknown]
  - Cystitis [Unknown]
  - Menorrhagia [Unknown]
  - Complication of device removal [Unknown]
  - Complication associated with device [Recovered/Resolved]
  - Vomiting [Unknown]
  - Procedural pain [Unknown]
  - Nausea [Unknown]
  - Depression [Unknown]
  - Acne [Unknown]
  - Device deployment issue [Unknown]
  - Peripheral swelling [Unknown]
  - Contusion [Unknown]
  - Implant site scar [Unknown]
  - Headache [Unknown]

NARRATIVE: CASE EVENT DATE: 2018
